FAERS Safety Report 6985136-3 (Version None)
Quarter: 2010Q3

REPORT INFORMATION
  Report Type: 
  Country: None (occurrence: None)
  Receive Date: 20100915
  Receipt Date: 20100906
  Transmission Date: 20110219
  Serious: Yes (Hospitalization)
  Sender: FDA-Public Use
  Company Number: DE-ROCHE-681950

PATIENT
  Sex: Male
  Weight: 85.5 kg

DRUGS (8)
  1. CAPECITABINE [Suspect]
     Dosage: FREQUENCY REPORTED: SPLIT IN 2 DAILY DOSAGES.  LAST DOSE PRIOR TO SAE: 15 JANUARY 2010
     Route: 048
     Dates: start: 20090815
  2. CAPECITABINE [Suspect]
     Dosage: FREQUENCY: DAILY; LAST DOSE PRIOR TO SAE 15 JANUARY 2010.
     Route: 048
     Dates: start: 20100106
  3. CAPECITABINE [Suspect]
     Dosage: DOSE REDUCED TO 75%
     Route: 048
  4. DOCETAXEL [Suspect]
     Dosage: FREQUENCY REPORTED: 1X
     Route: 042
     Dates: start: 20090815
  5. DOCETAXEL [Suspect]
     Dosage: FREQUENCY: IX; LAST DOSE PRIOR TO SAE 06 JANUARY 2010.
     Route: 042
     Dates: start: 20100106
  6. CISPLATIN [Suspect]
     Dosage: FREQUENCY REPORTED: 1X.  LAST DOSE PRIOR TO SAE: 6 JANUARY 2010.
     Route: 042
     Dates: start: 20090815
  7. CISPLATIN [Suspect]
     Dosage: FREQUENCY: ^1X^
     Route: 042
     Dates: start: 20100106
  8. TEPILTA [Concomitant]
     Dosage: 2 (BRE) SACHET.
     Dates: start: 20100112

REACTIONS (2)
  - NEUTROPENIA [None]
  - PANCREATITIS ACUTE [None]
